FAERS Safety Report 11226831 (Version 1)
Quarter: 2015Q2

REPORT INFORMATION
  Report Type: Spontaneous
  Country: US (occurrence: US)
  Receive Date: 20150630
  Receipt Date: 20150630
  Transmission Date: 20150821
  Serious: Yes (Other)
  Sender: FDA-Public Use
  Company Number: US-SA-2015SA058786

PATIENT
  Age: 57 Year
  Sex: Female

DRUGS (10)
  1. METHOTREXATE [Concomitant]
     Active Substance: METHOTREXATE
     Indication: RHEUMATOID ARTHRITIS
     Dates: start: 2010
  2. AUBAGIO [Suspect]
     Active Substance: TERIFLUNOMIDE
     Indication: MULTIPLE SCLEROSIS
     Dosage: DOSE-1 MORNING  1 EVENING
     Route: 065
     Dates: start: 20150215, end: 20150328
  3. METHOTREXATE [Concomitant]
     Active Substance: METHOTREXATE
     Indication: SJOGREN^S SYNDROME
     Dates: start: 2010
  4. PREDNISONE. [Concomitant]
     Active Substance: PREDNISONE
     Indication: MULTIPLE SCLEROSIS
     Dates: start: 2010, end: 2015
  5. PREDNISONE. [Concomitant]
     Active Substance: PREDNISONE
     Indication: ATTENTION DEFICIT/HYPERACTIVITY DISORDER
     Dates: start: 2010, end: 2015
  6. RAMIPRIL. [Concomitant]
     Active Substance: RAMIPRIL
     Indication: HYPERTENSION
     Dates: start: 2009
  7. IMURAN [Concomitant]
     Active Substance: AZATHIOPRINE
     Indication: MULTIPLE SCLEROSIS
     Dates: start: 2012
  8. PREDNISONE. [Concomitant]
     Active Substance: PREDNISONE
     Indication: RHEUMATOID ARTHRITIS
     Dates: start: 2010, end: 2015
  9. IMURAN [Concomitant]
     Active Substance: AZATHIOPRINE
     Indication: RHEUMATOID ARTHRITIS
     Dates: start: 2012
  10. ADDERALL [Concomitant]
     Active Substance: AMPHETAMINE ASPARTATE\AMPHETAMINE SULFATE\DEXTROAMPHETAMINE SACCHARATE\DEXTROAMPHETAMINE SULFATE
     Indication: ATTENTION DEFICIT/HYPERACTIVITY DISORDER
     Dates: start: 1994

REACTIONS (8)
  - Gingivitis [Recovered/Resolved]
  - Drug administration error [Unknown]
  - Malaise [Recovered/Resolved]
  - Kidney infection [Recovered/Resolved]
  - Lung infection [Recovered/Resolved]
  - Hypersomnia [Recovered/Resolved]
  - Ear infection [Recovered/Resolved]
  - Infection [Recovered/Resolved]

NARRATIVE: CASE EVENT DATE: 20150215
